FAERS Safety Report 15736994 (Version 12)
Quarter: 2021Q3

REPORT INFORMATION
  Report Type: Report from Study
  Country: DE (occurrence: DE)
  Receive Date: 20181218
  Receipt Date: 20210715
  Transmission Date: 20211014
  Serious: Yes (Hospitalization, Other)
  Sender: FDA-Public Use
  Company Number: PHHY2018DE188321

PATIENT
  Age: 54 Year
  Sex: Female
  Weight: 80 kg

DRUGS (18)
  1. METHOTREXAT [Concomitant]
     Active Substance: METHOTREXATE
     Dosage: UNK
     Route: 058
     Dates: start: 20190513, end: 20191015
  2. PANTOPRAZOL [Concomitant]
     Active Substance: PANTOPRAZOLE SODIUM
     Indication: PROPHYLAXIS
     Dosage: UNK
     Route: 048
     Dates: start: 2015
  3. METHOTREXAT [Concomitant]
     Active Substance: METHOTREXATE
     Dosage: 15 MG, UNK
     Route: 058
     Dates: start: 20190206, end: 20190315
  4. METAMIZOLE [Concomitant]
     Active Substance: METAMIZOLE
     Indication: ANKYLOSING SPONDYLITIS
     Dosage: 500 MG
     Route: 048
     Dates: start: 201906
  5. TARGIN [Concomitant]
     Active Substance: NALOXONE HYDROCHLORIDE\OXYCODONE HYDROCHLORIDE
     Indication: ANKYLOSING SPONDYLITIS
     Dosage: UNK
     Route: 048
     Dates: start: 2017, end: 201908
  6. COSENTYX [Concomitant]
     Active Substance: SECUKINUMAB
     Indication: ANKYLOSING SPONDYLITIS
     Dosage: UNK
     Route: 058
     Dates: start: 20200616
  7. SYMBICORT [Concomitant]
     Active Substance: BUDESONIDE\FORMOTEROL FUMARATE DIHYDRATE
     Indication: CHRONIC OBSTRUCTIVE PULMONARY DISEASE
     Dosage: UNK
     Route: 048
     Dates: start: 2007
  8. BENEPALI [Concomitant]
     Active Substance: ETANERCEPT
     Indication: ANKYLOSING SPONDYLITIS
     Dosage: 25 MG
     Route: 058
     Dates: start: 20200305, end: 20200609
  9. IBUPROFEN. [Concomitant]
     Active Substance: IBUPROFEN
     Indication: ANKYLOSING SPONDYLITIS
     Dosage: UNK
     Route: 048
     Dates: start: 2015
  10. FOLSAEURE [Concomitant]
     Active Substance: FOLIC ACID
     Indication: PROPHYLAXIS
     Dosage: UNK
     Route: 048
     Dates: start: 201812
  11. DEKRISTOL [Concomitant]
     Active Substance: CHOLECALCIFEROL
     Indication: OSTEOPENIA
     Dosage: UNK
     Route: 048
     Dates: start: 201610
  12. NORSPAN [Concomitant]
     Active Substance: BUPRENORPHINE
     Indication: ANKYLOSING SPONDYLITIS
     Dosage: UNK
     Route: 062
     Dates: start: 202002
  13. ERELZI [Suspect]
     Active Substance: ETANERCEPT-SZZS
     Indication: ANKYLOSING SPONDYLITIS
     Dosage: 50 MG, QW
     Route: 058
     Dates: start: 20181017, end: 20181206
  14. METEX [Concomitant]
     Indication: ANKYLOSING SPONDYLITIS
     Dosage: UNK
     Route: 058
     Dates: start: 201812, end: 201901
  15. METHOTREXAT [Concomitant]
     Active Substance: METHOTREXATE
     Indication: ANKYLOSING SPONDYLITIS
     Dosage: UNK
     Route: 058
     Dates: start: 201812, end: 201901
  16. METHOTREXAT [Concomitant]
     Active Substance: METHOTREXATE
     Dosage: 15 MG
     Route: 058
     Dates: start: 20191106
  17. ERELZI [Suspect]
     Active Substance: ETANERCEPT-SZZS
     Dosage: 50 MG, QW
     Route: 058
     Dates: start: 20190902, end: 20200302
  18. PALEXIA [Concomitant]
     Active Substance: TAPENTADOL HYDROCHLORIDE
     Indication: ANKYLOSING SPONDYLITIS
     Dosage: 50 MG
     Route: 048
     Dates: start: 201906, end: 202002

REACTIONS (15)
  - Petechiae [Recovered/Resolved]
  - Red blood cell sedimentation rate increased [Unknown]
  - Blood alkaline phosphatase increased [Recovered/Resolved]
  - Alanine aminotransferase increased [Recovered/Resolved]
  - Burning sensation [Recovered/Resolved]
  - Rheumatoid factor increased [Unknown]
  - C-reactive protein increased [Unknown]
  - Upper respiratory tract infection [Recovered/Resolved]
  - Cholelithiasis [Recovered/Resolved]
  - Pain [Recovered/Resolved]
  - Haemorrhage [Recovered/Resolved]
  - Gamma-glutamyltransferase increased [Recovered/Resolved]
  - Joint abscess [Recovered/Resolved]
  - Arthralgia [Unknown]
  - Dizziness [Recovered/Resolved]

NARRATIVE: CASE EVENT DATE: 20181126
